FAERS Safety Report 8235435-2 (Version None)
Quarter: 2012Q1

REPORT INFORMATION
  Report Type: 
  Country: None (occurrence: None)
  Receive Date: 20120326
  Receipt Date: 20120321
  Transmission Date: 20120608
  Serious: Yes (Hospitalization)
  Sender: FDA-Public Use
  Company Number: BE-ABBOTT-12P-013-0901364-00

PATIENT
  Sex: Male
  Weight: 105 kg

DRUGS (6)
  1. DICLOFENAC SODIUM [Concomitant]
     Indication: INFLAMMATORY PAIN
     Dates: start: 20080101
  2. PRAMIPEXOLE DIHYDROCHLORIDE [Concomitant]
     Indication: RESTLESS LEGS SYNDROME
     Dates: start: 20100101
  3. OMEPRAZOLE [Concomitant]
     Indication: PROPHYLAXIS
  4. TAMSULOSIN HCL [Concomitant]
     Indication: BENIGN PROSTATIC HYPERPLASIA
     Dates: start: 20091001
  5. HUMIRA [Suspect]
     Indication: ANKYLOSING SPONDYLITIS
     Dates: start: 20080714
  6. OMEPRAZOLE [Concomitant]
     Indication: GASTRIC DISORDER
     Dates: start: 20080101

REACTIONS (6)
  - DEPRESSION [None]
  - CONVULSION [None]
  - IMPAIRED WORK ABILITY [None]
  - MALAISE [None]
  - IMPAIRED DRIVING ABILITY [None]
  - HEADACHE [None]
